FAERS Safety Report 5956087-8 (Version None)
Quarter: 2008Q4

REPORT INFORMATION
  Report Type: 
  Country: None (occurrence: None)
  Receive Date: 20081113
  Receipt Date: 20081031
  Transmission Date: 20090506
  Serious: No
  Sender: FDA-Public Use
  Company Number: DSU-2008-01842

PATIENT
  Age: 81 Year
  Sex: Female
  Weight: 56.4728 kg

DRUGS (6)
  1. WELCHOL [Suspect]
     Indication: HYPERLIPIDAEMIA
     Dosage: 3750 MG (3750 MG, QD), PER ORAL; 3750 MG (1875 MG, BID) PER ORAL
     Route: 048
     Dates: start: 20081017, end: 20081001
  2. WELCHOL [Suspect]
     Indication: HYPERLIPIDAEMIA
     Dosage: 3750 MG (3750 MG, QD), PER ORAL; 3750 MG (1875 MG, BID) PER ORAL
     Route: 048
     Dates: start: 20081001
  3. UNSPECIFIED BLOOD PRESSURE MEDICATIONS (ANTIHYPERTENSIVES) [Concomitant]
  4. UNSPECIFIED VITAMINS (VITAMINS) [Concomitant]
  5. FISH OIL (FISH OIL) (FISH OIL) [Concomitant]
  6. CALCIUM (CALCIUM) (TABLET) (CALCIUM) [Concomitant]

REACTIONS (5)
  - ABDOMINAL DISCOMFORT [None]
  - CONSTIPATION [None]
  - DYSPHAGIA [None]
  - FOREIGN BODY TRAUMA [None]
  - INAPPROPRIATE SCHEDULE OF DRUG ADMINISTRATION [None]
